FAERS Safety Report 21029171 (Version 2)
Quarter: 2023Q2

REPORT INFORMATION
  Report Type: Spontaneous
  Country: US (occurrence: US)
  Receive Date: 20220630
  Receipt Date: 20230425
  Transmission Date: 20230722
  Serious: No
  Sender: FDA-Public Use
  Company Number: US-JNJFOC-20220629643

PATIENT
  Age: 40 Year
  Sex: Female
  Weight: 63.560 kg

DRUGS (1)
  1. TREMFYA [Suspect]
     Active Substance: GUSELKUMAB
     Indication: Psoriasis
     Route: 065

REACTIONS (2)
  - Product dose omission issue [Unknown]
  - Device issue [Unknown]

NARRATIVE: CASE EVENT DATE: 20220613
